FAERS Safety Report 16689671 (Version 1)
Quarter: 2019Q3

REPORT INFORMATION
  Report Type: Spontaneous
  Country: US (occurrence: US)
  Receive Date: 20190809
  Receipt Date: 20190809
  Transmission Date: 20191004
  Serious: No
  Sender: FDA-Public Use
  Company Number: PHEH2019US032714

PATIENT
  Sex: Male

DRUGS (2)
  1. ZORTRESS [Suspect]
     Active Substance: EVEROLIMUS
     Indication: PRODUCT USED FOR UNKNOWN INDICATION
     Dosage: UNK
     Route: 048
  2. ZORTRESS [Suspect]
     Active Substance: EVEROLIMUS
     Dosage: 0.75 MG, UNK
     Route: 048

REACTIONS (1)
  - Product packaging difficult to open [Unknown]
